FAERS Safety Report 11180146 (Version 4)
Quarter: 2015Q3

REPORT INFORMATION
  Report Type: Spontaneous
  Country: US (occurrence: US)
  Receive Date: 20150611
  Receipt Date: 20150723
  Transmission Date: 20151125
  Serious: Yes (Death, Hospitalization)
  Sender: FDA-Public Use
  Company Number: US-UNITED THERAPEUTICS-UNT-2015-006746

PATIENT
  Age: 40 Year
  Sex: Female
  Weight: 56.69 kg

DRUGS (6)
  1. ADCIRCA [Concomitant]
     Active Substance: TADALAFIL
     Indication: PRODUCT USED FOR UNKNOWN INDICATION
  2. REMODULIN [Suspect]
     Active Substance: TREPROSTINIL
     Indication: PULMONARY ARTERIAL HYPERTENSION
     Dosage: 0.132 ?G/KG, CONTINUING
     Route: 058
     Dates: start: 20130510, end: 201506
  3. REMODULIN [Suspect]
     Active Substance: TREPROSTINIL
     Dosage: 0.132 ?G/KG, CONTINUING
     Route: 058
     Dates: start: 20130530, end: 201506
  4. WARFARIN [Concomitant]
     Active Substance: WARFARIN
     Indication: PRODUCT USED FOR UNKNOWN INDICATION
  5. REMODULIN [Suspect]
     Active Substance: TREPROSTINIL
     Dosage: UNK
     Route: 041
     Dates: start: 201506
  6. LETAIRIS [Concomitant]
     Active Substance: AMBRISENTAN
     Indication: PRODUCT USED FOR UNKNOWN INDICATION

REACTIONS (2)
  - Pneumonia [Unknown]
  - Pericardial effusion [Fatal]

NARRATIVE: CASE EVENT DATE: 20150602
